FAERS Safety Report 18164353 (Version 4)
Quarter: 2023Q2

REPORT INFORMATION
  Report Type: Report from Study
  Country: JP (occurrence: JP)
  Receive Date: 20200818
  Receipt Date: 20230530
  Transmission Date: 20230722
  Serious: Yes (Hospitalization)
  Sender: FDA-Public Use
  Company Number: JP-PFIZER INC-2020317972

PATIENT
  Age: 70 Year
  Sex: Male
  Weight: 61 kg

DRUGS (5)
  1. VYNDAQEL [Suspect]
     Active Substance: TAFAMIDIS MEGLUMINE
     Indication: Cardiac amyloidosis
     Dosage: 80 MG, 1X/DAY
     Route: 048
     Dates: start: 20200806
  2. EDOXABAN TOSYLATE [Concomitant]
     Active Substance: EDOXABAN TOSYLATE
     Dosage: UNK
     Route: 048
  3. BISOPROLOL FUMARATE [Concomitant]
     Active Substance: BISOPROLOL FUMARATE
     Indication: Cardiac amyloidosis
     Dosage: UNK
     Route: 048
  4. AZOSEMIDE [Concomitant]
     Active Substance: AZOSEMIDE
     Indication: Cardiac amyloidosis
     Dosage: UNK
     Route: 048
  5. EPLERENONE [Concomitant]
     Active Substance: EPLERENONE
     Indication: Cardiac amyloidosis
     Dosage: UNK
     Route: 048
     Dates: end: 20210708

REACTIONS (1)
  - Implant site infection [Recovered/Resolved]

NARRATIVE: CASE EVENT DATE: 20200814
